FAERS Safety Report 5266823-4 (Version None)
Quarter: 2007Q1

REPORT INFORMATION
  Report Type: 
  Country: None (occurrence: None)
  Receive Date: 20061213
  Receipt Date: 20021126
  Transmission Date: 20070707
  Serious: Yes (Death)
  Sender: FDA-Public Use
  Company Number: 2002UW16175

PATIENT

DRUGS (1)
  1. NOLVADEX [Suspect]

REACTIONS (1)
  - LIVER DISORDER [None]
